FAERS Safety Report 23957817 (Version 1)
Quarter: 2024Q2

REPORT INFORMATION
  Report Type: Spontaneous
  Country: US (occurrence: US)
  Receive Date: 20240610
  Receipt Date: 20240610
  Transmission Date: 20240715
  Serious: No
  Sender: FDA-Public Use
  Company Number: US-E2BLSMVVAL-SPO/USA/24/0008180

PATIENT
  Sex: Male

DRUGS (3)
  1. HABITROL [Suspect]
     Active Substance: NICOTINE
     Indication: Ex-tobacco user
     Route: 062
  2. HABITROL [Suspect]
     Active Substance: NICOTINE
     Route: 062
  3. HABITROL [Suspect]
     Active Substance: NICOTINE
     Route: 062

REACTIONS (4)
  - Dyspnoea [Unknown]
  - Headache [Unknown]
  - Hypertension [Unknown]
  - Dizziness [Unknown]
